FAERS Safety Report 4386102-7 (Version None)
Quarter: 2004Q2

REPORT INFORMATION
  Report Type: 
  Country: None (occurrence: None)
  Receive Date: 20040625
  Receipt Date: 20040625
  Transmission Date: 20050107
  Serious: Yes (Death)
  Sender: FDA-Public Use
  Company Number: None

PATIENT
  Age: 54 Year
  Sex: Male

DRUGS (2)
  1. ALTEPLASE [Suspect]
     Indication: CATHETER RELATED COMPLICATION
     Dosage: 3 MG OVER 3 HR IV
     Route: 042
     Dates: start: 20040303
  2. ENOXAPARIN SODIUM [Suspect]
     Dosage: 40 MG SQ

REACTIONS (8)
  - CARDIO-RESPIRATORY ARREST [None]
  - CONSTIPATION [None]
  - DEVICE FAILURE [None]
  - DIARRHOEA HAEMORRHAGIC [None]
  - GASTROINTESTINAL HAEMORRHAGE [None]
  - HAEMATOCRIT DECREASED [None]
  - POST-TRAUMATIC STRESS DISORDER [None]
  - URINARY INCONTINENCE [None]
